FAERS Safety Report 23310069 (Version 2)
Quarter: 2023Q4

REPORT INFORMATION
  Report Type: Spontaneous
  Country: DE (occurrence: DE)
  Receive Date: 20231218
  Receipt Date: 20231220
  Transmission Date: 20240110
  Serious: Yes (Death, Life-Threatening, Hospitalization, Other)
  Sender: FDA-Public Use
  Company Number: DE-SERVIER-S23013769

PATIENT
  Age: 58 Year
  Sex: Female

DRUGS (26)
  1. METHOTREXATE [Suspect]
     Active Substance: METHOTREXATE
     Indication: B-cell type acute leukaemia
     Dosage: 1000 MILLIGRAM/SQ. METER
     Route: 065
     Dates: start: 202201, end: 202202
  2. METHOTREXATE [Suspect]
     Active Substance: METHOTREXATE
     Dosage: UNK
     Route: 037
     Dates: start: 2019
  3. METHOTREXATE [Suspect]
     Active Substance: METHOTREXATE
     Dosage: 1000 MILLIGRAM/SQ. METER AS 24-H INFUSION
     Route: 065
     Dates: start: 202202
  4. PEGASPARGASE [Suspect]
     Active Substance: PEGASPARGASE
     Indication: B-cell type acute leukaemia
     Dosage: 1 DOSAGE FORM
     Route: 065
     Dates: start: 202201, end: 202202
  5. PEGASPARGASE [Suspect]
     Active Substance: PEGASPARGASE
     Indication: Leukaemia recurrent
     Dosage: 1000 IE/M2, WERE ADMINISTERED ON DAYS 1 AND 2.
     Route: 065
     Dates: start: 202202
  6. PEGASPARGASE [Suspect]
     Active Substance: PEGASPARGASE
     Dosage: 2000 U/M2  CYCLICAL
     Route: 065
     Dates: start: 201906
  7. RITUXIMAB [Suspect]
     Active Substance: RITUXIMAB
     Indication: Acute lymphocytic leukaemia
     Dosage: UNK
     Route: 065
     Dates: start: 202201, end: 202202
  8. INOTUZUMAB OZOGAMICIN [Suspect]
     Active Substance: INOTUZUMAB OZOGAMICIN
     Indication: Leukaemia recurrent
     Dosage: 0.3 MG/M2, 2 DOSES CYCLIC
     Route: 065
     Dates: start: 202111
  9. INOTUZUMAB OZOGAMICIN [Suspect]
     Active Substance: INOTUZUMAB OZOGAMICIN
     Indication: B-cell type acute leukaemia
     Dosage: 0.6 MG/M2, 2 DOSES CYCLIC
     Route: 065
     Dates: start: 202111
  10. INOTUZUMAB OZOGAMICIN [Suspect]
     Active Substance: INOTUZUMAB OZOGAMICIN
     Dosage: 0.3 MG/M2, TWO ADDITIONAL DOSES EACH CYCLIC
     Route: 065
     Dates: start: 202112
  11. CYCLOPHOSPHAMIDE [Concomitant]
     Active Substance: CYCLOPHOSPHAMIDE
     Indication: Leukaemia recurrent
     Dosage: UNK CYCLICAL
     Route: 065
     Dates: start: 201906
  12. CYCLOPHOSPHAMIDE [Concomitant]
     Active Substance: CYCLOPHOSPHAMIDE
     Indication: B-cell type acute leukaemia
  13. BLINATUMOMAB [Concomitant]
     Active Substance: BLINATUMOMAB
     Indication: Leukaemia recurrent
     Dosage: UNK
     Route: 065
     Dates: start: 202009
  14. BLINATUMOMAB [Concomitant]
     Active Substance: BLINATUMOMAB
     Indication: B-cell type acute leukaemia
  15. VINCRISTINE [Concomitant]
     Active Substance: VINCRISTINE
     Indication: Leukaemia recurrent
     Dosage: UNK CYCLICAL
     Route: 065
  16. VINCRISTINE [Concomitant]
     Active Substance: VINCRISTINE
     Indication: B-cell type acute leukaemia
  17. FLUDARABINE [Concomitant]
     Active Substance: FLUDARABINE PHOSPHATE
     Indication: Therapeutic procedure
     Dosage: UNK
     Route: 065
     Dates: start: 201912
  18. CYTARABINE [Concomitant]
     Active Substance: CYTARABINE
     Indication: Leukaemia recurrent
     Dosage: UNK
     Route: 065
  19. CYTARABINE [Concomitant]
     Active Substance: CYTARABINE
     Indication: Leukaemia recurrent
  20. CYTARABINE [Concomitant]
     Active Substance: CYTARABINE
     Indication: Leukaemia recurrent
     Dosage: UNK CYCLICAL
     Route: 065
  21. CYTARABINE [Concomitant]
     Active Substance: CYTARABINE
     Indication: B-cell type acute leukaemia
  22. RITUXIMAB [Concomitant]
     Active Substance: RITUXIMAB
     Indication: Leukaemia recurrent
     Dosage: UNK CYCLICAL
     Route: 065
  23. RITUXIMAB [Concomitant]
     Active Substance: RITUXIMAB
     Indication: B-cell type acute leukaemia
  24. DEXAMETHASONE [Concomitant]
     Active Substance: DEXAMETHASONE
     Indication: Leukaemia recurrent
     Dosage: UNK
     Route: 065
  25. DEXAMETHASONE [Concomitant]
     Active Substance: DEXAMETHASONE
     Indication: Leukaemia recurrent
  26. URSODIOL [Concomitant]
     Active Substance: URSODIOL
     Indication: Prophylaxis
     Dosage: UNK CYCLICAL
     Route: 065

REACTIONS (5)
  - Shock haemorrhagic [Fatal]
  - Lactic acidosis [Fatal]
  - Acute hepatic failure [Fatal]
  - Toxicity to various agents [Not Recovered/Not Resolved]
  - Stomatitis [Unknown]

NARRATIVE: CASE EVENT DATE: 20220101
